FAERS Safety Report 9085663 (Version 1)
Quarter: 2013Q1

REPORT INFORMATION
  Report Type: Report from Study
  Country: US (occurrence: US)
  Receive Date: 20130131
  Receipt Date: 20130131
  Transmission Date: 20140127
  Serious: No
  Sender: FDA-Public Use
  Company Number: US-ABBOTT-12P-163-0993064-00

PATIENT
  Age: 40 Year
  Sex: Female

DRUGS (5)
  1. HUMIRA [Suspect]
     Indication: CROHN^S DISEASE
  2. ZOLOFT [Concomitant]
     Indication: ANXIETY
  3. ZOLOFT [Concomitant]
     Indication: DEPRESSION
  4. AMBIEN [Concomitant]
     Indication: INSOMNIA
  5. XANAX [Concomitant]
     Indication: ANXIETY

REACTIONS (8)
  - Malaise [Not Recovered/Not Resolved]
  - Frequent bowel movements [Not Recovered/Not Resolved]
  - Fatigue [Not Recovered/Not Resolved]
  - Injection site papule [Not Recovered/Not Resolved]
  - Device malfunction [Not Recovered/Not Resolved]
  - Frequent bowel movements [Not Recovered/Not Resolved]
  - Abdominal pain [Not Recovered/Not Resolved]
  - Incorrect dose administered [Not Recovered/Not Resolved]
